FAERS Safety Report 16018022 (Version 1)
Quarter: 2019Q1

REPORT INFORMATION
  Report Type: Spontaneous
  Country: US (occurrence: US)
  Receive Date: 20190228
  Receipt Date: 20190228
  Transmission Date: 20190418
  Serious: No
  Sender: FDA-Public Use
  Company Number: US-GLAXOSMITHKLINE-US2019032965

PATIENT
  Sex: Male

DRUGS (2)
  1. ABREVA [Suspect]
     Active Substance: DOCOSANOL
     Indication: ORAL HERPES
     Dosage: UNK 5 TIMES A DAY
     Dates: end: 20190215
  2. ABREVA [Suspect]
     Active Substance: DOCOSANOL
     Dosage: UNK 5 TIMES A DAY

REACTIONS (6)
  - Wrong technique in product usage process [Unknown]
  - Oral herpes [Recovered/Resolved]
  - Product administered at inappropriate site [Unknown]
  - Accidental exposure to product [Unknown]
  - Condition aggravated [Recovered/Resolved]
  - Drug ineffective [Unknown]
